FAERS Safety Report 4655902-8 (Version None)
Quarter: 2005Q2

REPORT INFORMATION
  Report Type: 
  Country: None (occurrence: None)
  Receive Date: 20050505
  Receipt Date: 20050422
  Transmission Date: 20051028
  Serious: Yes (Hospitalization)
  Sender: FDA-Public Use
  Company Number: 2005055750

PATIENT
  Age: 72 Year
  Sex: Male
  Weight: 68 kg

DRUGS (7)
  1. CABERGOLINE [Suspect]
     Indication: PARKINSON'S DISEASE
     Dosage: SEE IMAGE
     Route: 048
     Dates: start: 20031112, end: 20031120
  2. CABERGOLINE [Suspect]
     Indication: PARKINSON'S DISEASE
     Dosage: SEE IMAGE
     Route: 048
     Dates: start: 20031121, end: 20040511
  3. CABERGOLINE [Suspect]
     Indication: PARKINSON'S DISEASE
     Dosage: SEE IMAGE
     Route: 048
     Dates: start: 20040512, end: 20050101
  4. CABERGOLINE [Suspect]
     Indication: PARKINSON'S DISEASE
     Dosage: SEE IMAGE
     Route: 048
     Dates: start: 20030212, end: 20050329
  5. BUFFERIN [Suspect]
     Indication: TOOTHACHE
     Dosage: 100 MG (100 MG, ONCE INTERVAL: ONCE), ORAL
     Route: 048
     Dates: start: 20050329, end: 20050330
  6. AMLODIPINE BESYLATE [Concomitant]
  7. SINEMET [Concomitant]

REACTIONS (8)
  - BLOOD CREATINE PHOSPHOKINASE INCREASED [None]
  - C-REACTIVE PROTEIN INCREASED [None]
  - DEPRESSED LEVEL OF CONSCIOUSNESS [None]
  - FALL [None]
  - INCOHERENT [None]
  - PYREXIA [None]
  - TOOTHACHE [None]
  - WHITE BLOOD CELL COUNT INCREASED [None]
